FAERS Safety Report 20494322 (Version 2)
Quarter: 2023Q1

REPORT INFORMATION
  Report Type: Spontaneous
  Country: US (occurrence: US)
  Receive Date: 20220221
  Receipt Date: 20230203
  Transmission Date: 20230417
  Serious: Yes (Hospitalization)
  Sender: FDA-Public Use
  Company Number: US-SA-SAC20220217001110

PATIENT
  Age: 35 Year
  Sex: Male

DRUGS (2)
  1. DUPIXENT [Suspect]
     Active Substance: DUPILUMAB
     Dosage: 300 MG, FREQUENCY-OTHER
     Route: 058
     Dates: start: 20201101
  2. DUPIXENT [Suspect]
     Active Substance: DUPILUMAB
     Dosage: 300 MG , FREQUENCY: OTHER
     Dates: start: 202203

REACTIONS (1)
  - Skin operation [Unknown]

NARRATIVE: CASE EVENT DATE: 20220202
